FAERS Safety Report 17873603 (Version 3)
Quarter: 2020Q2

REPORT INFORMATION
  Report Type: Spontaneous
  Country: JP (occurrence: JP)
  Receive Date: 20200609
  Receipt Date: 20200620
  Transmission Date: 20200714
  Serious: Yes (Death, Hospitalization, Other)
  Sender: FDA-Public Use
  Company Number: JP-AMGEN-JPNSP2020088964

PATIENT
  Age: 62 Year
  Sex: Male
  Weight: 76.4 kg

DRUGS (9)
  1. REGPARA [Concomitant]
     Active Substance: CINACALCET HYDROCHLORIDE
     Dosage: 50 MG, EVERYDAY
     Route: 048
     Dates: end: 20200116
  2. ALFAROL [Concomitant]
     Active Substance: ALFACALCIDOL
     Dosage: 0.25 UG, EVERYDAY
     Route: 065
     Dates: end: 20200116
  3. MEXITIL [Suspect]
     Active Substance: MEXILETINE HYDROCHLORIDE
     Indication: ACUTE MYOCARDIAL INFARCTION
     Dosage: 3 DF
     Route: 048
     Dates: start: 2020
  4. RIONA [Concomitant]
     Active Substance: FERRIC CITRATE ANHYDROUS
     Dosage: 1500 MG, EVERYDAY
     Route: 065
     Dates: end: 20200116
  5. PARSABIV [Suspect]
     Active Substance: ETELCALCETIDE HYDROCHLORIDE
     Indication: HYPERPARATHYROIDISM SECONDARY
     Dosage: 10 MG, Q56H
     Route: 010
     Dates: start: 20200116
  6. OXAROL [Concomitant]
     Active Substance: MAXACALCITOL
     Indication: HYPERPARATHYROIDISM SECONDARY
     Dosage: 7.5 MICROGRAM, 3 TIMES/WK
     Route: 065
     Dates: start: 20200116
  7. ALFAROL [Concomitant]
     Active Substance: ALFACALCIDOL
     Dosage: 0.25 UG, EVERYDAY
     Route: 065
     Dates: end: 20200116
  8. KIKLIN [Concomitant]
     Active Substance: BIXALOMER
     Dosage: 1500 MG, EVERYDAY
     Route: 065
     Dates: end: 20200116
  9. OXAROL [Concomitant]
     Active Substance: MAXACALCITOL
     Dosage: 7.5 UG, Q56H
     Route: 065
     Dates: start: 20200116

REACTIONS (3)
  - Drug-induced liver injury [Recovering/Resolving]
  - Pneumonia [Fatal]
  - Drug eruption [Recovered/Resolved]

NARRATIVE: CASE EVENT DATE: 20200221
